FAERS Safety Report 16450232 (Version 1)
Quarter: 2019Q2

REPORT INFORMATION
  Report Type: Spontaneous
  Country: IT (occurrence: IT)
  Receive Date: 20190619
  Receipt Date: 20190619
  Transmission Date: 20190711
  Serious: Yes (Hospitalization)
  Sender: FDA-Public Use
  Company Number: IT-GLAXOSMITHKLINE-IT2019108748

PATIENT
  Age: 45 Year
  Sex: Male

DRUGS (2)
  1. VOLTFAST [Suspect]
     Active Substance: DICLOFENAC
     Indication: HEADACHE
     Dosage: 1 DF, QD
     Route: 048
     Dates: start: 20190409, end: 20190409
  2. OKI [Suspect]
     Active Substance: KETOPROFEN LYSINE
     Indication: HEADACHE
     Dosage: 1 DF, QD
     Route: 048
     Dates: start: 20190409, end: 20190409

REACTIONS (2)
  - Gastritis [Recovering/Resolving]
  - Abdominal pain upper [Recovering/Resolving]

NARRATIVE: CASE EVENT DATE: 20190413
